FAERS Safety Report 8781999 (Version 3)
Quarter: 2012Q4

REPORT INFORMATION
  Report Type: 
  Country: US (occurrence: US)
  Receive Date: 20120913
  Receipt Date: 20121203
  Transmission Date: 20130627
  Serious: Yes (Other)
  Sender: FDA-Public Use
  Company Number: US-GILEAD-2012-0061085

PATIENT
  Sex: Female

DRUGS (5)
  1. LETAIRIS [Suspect]
     Indication: PULMONARY HYPERTENSION
     Dosage: 5 mg, UNK
     Route: 048
     Dates: start: 20070913
  2. LETAIRIS [Suspect]
     Indication: COR PULMONALE CHRONIC
  3. LETAIRIS [Suspect]
     Indication: HEART DISEASE CONGENITAL
  4. REMODULIN [Concomitant]
  5. ADCIRCA [Concomitant]

REACTIONS (2)
  - Cataract [Unknown]
  - Cataract [Unknown]
